FAERS Safety Report 18399058 (Version 1)
Quarter: 2020Q4

REPORT INFORMATION
  Report Type: Spontaneous
  Country: US (occurrence: US)
  Receive Date: 20201019
  Receipt Date: 20201019
  Transmission Date: 20210114
  Serious: No
  Sender: FDA-Public Use
  Company Number: US-MILLICENT HOLDINGS LTD.-MILL20201001

PATIENT
  Sex: Female

DRUGS (1)
  1. INTRAROSA [Suspect]
     Active Substance: PRASTERONE
     Indication: MENOPAUSAL SYMPTOMS
     Dosage: UNKNOWN
     Route: 067
     Dates: start: 202001

REACTIONS (2)
  - Off label use [Unknown]
  - Application site discharge [Not Recovered/Not Resolved]

NARRATIVE: CASE EVENT DATE: 202001
